FAERS Safety Report 10177345 (Version 2)
Quarter: 2014Q2

REPORT INFORMATION
  Report Type: Spontaneous
  Country: US (occurrence: None)
  Receive Date: 20140416
  Receipt Date: 20140604
  Transmission Date: 20141212
  Serious: Yes (Hospitalization)
  Sender: FDA-Public Use
  Company Number: 163-POMAL-14010595

PATIENT
  Age: 62 Year
  Sex: Male

DRUGS (10)
  1. POMALYST (POMALIDOMIDE) (4 MILLIGRAM, CAPSULES) [Suspect]
     Indication: PLASMA CELL MYELOMA
     Dosage: 4 MG, 21 IN 28 D, PO?
     Route: 048
     Dates: start: 20131119, end: 20131227
  2. COREG (CARVEDILOL) [Concomitant]
  3. LISINOPRIL [Concomitant]
  4. NORVASC (AMLODIPINE BESILATE) [Concomitant]
  5. MS CONTIN (MORPHINE SULFATE) [Concomitant]
  6. OXYCODONE [Concomitant]
  7. METFORMIN [Concomitant]
  8. NEURONTIN (GABAPENTIN) [Concomitant]
  9. ACYCLOVIR (ACICLOVIR) (ACICLOVIR) [Concomitant]
  10. OXYGEN [Concomitant]

REACTIONS (2)
  - Pneumonia [None]
  - Hypoxia [None]
